FAERS Safety Report 24925397 (Version 1)
Quarter: 2025Q1

REPORT INFORMATION
  Report Type: Report from Study
  Country: US (occurrence: US)
  Receive Date: 20250204
  Receipt Date: 20250204
  Transmission Date: 20250409
  Serious: No
  Sender: EXELIXIS
  Company Number: US-EXELIXIS-CABO-24076944

PATIENT
  Sex: Male

DRUGS (8)
  1. CABOMETYX [Suspect]
     Active Substance: CABOZANTINIB S-MALATE
     Indication: Renal cell carcinoma
     Dosage: 40 MG, QD
     Dates: start: 20240327
  2. METFORMIN [Concomitant]
     Active Substance: METFORMIN HYDROCHLORIDE
  3. GLYBURIDE [Concomitant]
     Active Substance: GLYBURIDE
  4. OMEPRAZOLE [Concomitant]
     Active Substance: OMEPRAZOLE
  5. LISINOPRIL [Concomitant]
     Active Substance: LISINOPRIL
  6. JANUVIA [Concomitant]
     Active Substance: SITAGLIPTIN PHOSPHATE
  7. ATORVASTATIN [Concomitant]
     Active Substance: ATORVASTATIN
  8. ADVIL [Concomitant]
     Active Substance: IBUPROFEN

REACTIONS (15)
  - Blood pressure increased [Recovering/Resolving]
  - Mouth haemorrhage [Recovered/Resolved]
  - Taste disorder [Recovered/Resolved]
  - Acne [Not Recovered/Not Resolved]
  - Fatigue [Recovered/Resolved]
  - Diarrhoea [Not Recovered/Not Resolved]
  - Dry skin [Recovered/Resolved]
  - Oncologic complication [Recovered/Resolved]
  - Breath odour [Recovered/Resolved]
  - Somnolence [Not Recovered/Not Resolved]
  - Salivary hypersecretion [Not Recovered/Not Resolved]
  - Gait disturbance [Unknown]
  - Productive cough [Not Recovered/Not Resolved]
  - Skin ulcer [Unknown]
  - Blister [Unknown]
